FAERS Safety Report 5933186-8 (Version None)
Quarter: 2008Q4

REPORT INFORMATION
  Report Type: 
  Country: None (occurrence: None)
  Receive Date: 20081028
  Receipt Date: 20081015
  Transmission Date: 20090506
  Serious: Yes (Death)
  Sender: FDA-Public Use
  Company Number: JP-PFIZER INC-2008082912

PATIENT
  Sex: Male

DRUGS (10)
  1. IRINOTECAN HCL [Suspect]
     Indication: GASTRIC CANCER
     Route: 042
     Dates: start: 20080826, end: 20080826
  2. MITOMYCIN [Concomitant]
     Indication: GASTRIC CANCER
     Dosage: DAILY DOSE:6MG
     Route: 042
     Dates: start: 20080826, end: 20080826
  3. PRIMPERAN [Concomitant]
     Indication: NAUSEA
     Dosage: DAILY DOSE:10MG
     Route: 042
     Dates: start: 20060826, end: 20060826
  4. INDISETRON [Concomitant]
     Indication: NAUSEA
     Dosage: DAILY DOSE:8MG
     Route: 048
     Dates: start: 20080826, end: 20080826
  5. DEXAMETHASONE SODIUM PHOSPHATE [Concomitant]
     Indication: NAUSEA
     Dosage: DAILY DOSE:8MG
     Route: 042
     Dates: start: 20080826, end: 20080826
  6. LASIX [Concomitant]
     Indication: ASCITES
     Dosage: DAILY DOSE:40MG
     Route: 048
     Dates: start: 20080819
  7. ALDACTONE [Concomitant]
     Indication: ASCITES
     Dosage: DAILY DOSE:75MG
     Route: 048
     Dates: start: 20080824
  8. FAMOTIDINE [Concomitant]
     Indication: GASTRITIS
     Dosage: DAILY DOSE:40MG
     Route: 048
     Dates: start: 20080822
  9. SELBEX [Concomitant]
     Indication: GASTRITIS
     Dosage: DAILY DOSE:150MG
     Route: 048
     Dates: start: 20080822
  10. NORVASC [Concomitant]
     Indication: HYPERTENSION
     Route: 048
     Dates: start: 20080822

REACTIONS (3)
  - BONE MARROW FAILURE [None]
  - GASTROINTESTINAL HAEMORRHAGE [None]
  - HEPATIC FAILURE [None]
